FAERS Safety Report 6014122-5 (Version None)
Quarter: 2008Q4

REPORT INFORMATION
  Report Type: 
  Country: None (occurrence: None)
  Receive Date: 20081219
  Receipt Date: 20080220
  Transmission Date: 20090506
  Serious: No
  Sender: FDA-Public Use
  Company Number: A0699988A

PATIENT
  Sex: Male

DRUGS (5)
  1. AVODART [Suspect]
     Indication: BENIGN PROSTATIC HYPERPLASIA
     Dosage: .5MG PER DAY
     Route: 048
     Dates: start: 20070501
  2. FLOMAX [Suspect]
     Dosage: .4MG TWICE PER DAY
     Route: 048
     Dates: start: 20050101
  3. GLIPIZIDE [Concomitant]
  4. VICODIN [Concomitant]
  5. ACCUPRIL [Concomitant]

REACTIONS (4)
  - CONFUSIONAL STATE [None]
  - ERECTION INCREASED [None]
  - HYPOTENSION [None]
  - MEMORY IMPAIRMENT [None]
